FAERS Safety Report 5142543-1 (Version None)
Quarter: 2006Q4

REPORT INFORMATION
  Report Type: 
  Country: None (occurrence: None)
  Receive Date: 20061027
  Receipt Date: 20061014
  Transmission Date: 20070319
  Serious: Yes (Other)
  Sender: FDA-Public Use
  Company Number: 2006105079

PATIENT
  Age: 70 Year
  Sex: Female
  Weight: 72.5755 kg

DRUGS (8)
  1. ERAXIS [Suspect]
     Indication: LUNG DISORDER
     Dosage: 200 MG (1 IN 1 D), INTRAVENOUS; SEE IMAGE
     Route: 042
     Dates: start: 20060703, end: 20060703
  2. ERAXIS [Suspect]
     Indication: SYSTEMIC CANDIDA
     Dosage: 200 MG (1 IN 1 D), INTRAVENOUS; SEE IMAGE
     Route: 042
     Dates: start: 20060703, end: 20060703
  3. ERAXIS [Suspect]
     Indication: LUNG DISORDER
     Dosage: 200 MG (1 IN 1 D), INTRAVENOUS; SEE IMAGE
     Route: 042
     Dates: start: 20060704
  4. ERAXIS [Suspect]
     Indication: SYSTEMIC CANDIDA
     Dosage: 200 MG (1 IN 1 D), INTRAVENOUS; SEE IMAGE
     Route: 042
     Dates: start: 20060704
  5. PROGRAF [Suspect]
  6. TACROLIMUS                (TACROLIMUS) [Concomitant]
  7. CELLCEPT [Concomitant]
  8. PREDNISONE TAB [Concomitant]

REACTIONS (2)
  - IMMUNOSUPPRESSANT DRUG LEVEL DECREASED [None]
  - LIVER FUNCTION TEST ABNORMAL [None]
